FAERS Safety Report 24267508 (Version 1)
Quarter: 2024Q3

REPORT INFORMATION
  Report Type: Spontaneous
  Country: TN (occurrence: TN)
  Receive Date: 20240830
  Receipt Date: 20240830
  Transmission Date: 20241017
  Serious: Yes (Hospitalization, Other)
  Sender: UCB
  Company Number: TN-UCBSA-2024040245

PATIENT
  Age: 50 Year
  Sex: Female

DRUGS (1)
  1. LEVETIRACETAM [Suspect]
     Active Substance: LEVETIRACETAM
     Indication: Seizure
     Dosage: 500 MILLIGRAM, 2X/DAY (BID)

REACTIONS (3)
  - Cardio-respiratory arrest [Not Recovered/Not Resolved]
  - Status epilepticus [Unknown]
  - Drug ineffective [Unknown]
